FAERS Safety Report 8310837-4 (Version None)
Quarter: 2012Q2

REPORT INFORMATION
  Report Type: 
  Country: None (occurrence: None)
  Receive Date: 20120425
  Receipt Date: 20120412
  Transmission Date: 20120825
  Serious: Yes (Hospitalization)
  Sender: FDA-Public Use
  Company Number: AU-CELGENEUS-008-50794-12041189

PATIENT
  Sex: Male

DRUGS (6)
  1. PREDNISONE [Concomitant]
     Indication: TEMPORAL ARTERITIS
     Dosage: 25 MILLIGRAM
     Route: 065
     Dates: end: 20120326
  2. REVLIMID [Suspect]
     Dosage: 10 MILLIGRAM
     Route: 048
  3. VIDAZA [Suspect]
     Dosage: 150 MILLIGRAM
     Route: 065
  4. PREDNISONE [Concomitant]
     Dosage: 10 MILLIGRAM
     Route: 065
     Dates: end: 20120405
  5. PREDNISONE [Concomitant]
     Dosage: 12.5 MILLIGRAM
     Route: 065
     Dates: end: 20120331
  6. PREDNISONE [Concomitant]
     Dosage: 5 MILLIGRAM
     Route: 065
     Dates: start: 20120401

REACTIONS (1)
  - SKIN ULCER [None]
